FAERS Safety Report 5520399-2 (Version None)
Quarter: 2007Q4

REPORT INFORMATION
  Report Type: 
  Country: None (occurrence: None)
  Receive Date: 20071114
  Receipt Date: 20071106
  Transmission Date: 20080405
  Serious: Yes (Hospitalization)
  Sender: FDA-Public Use
  Company Number: JPI-P-002439

PATIENT
  Sex: Male
  Weight: 117.9352 kg

DRUGS (3)
  1. XYREM [Suspect]
     Indication: INSOMNIA
     Dosage: 9 GM (9 GM,1 IN 1 D),ORAL
     Route: 048
     Dates: start: 20070601
  2. ALENDRONATE SODIUM [Concomitant]
  3. DUTASTERIDE (DUTASTERIDE) [Concomitant]

REACTIONS (4)
  - BACK INJURY [None]
  - CARDIAC DISORDER [None]
  - CARDIAC PACEMAKER INSERTION [None]
  - FALL [None]
